FAERS Safety Report 4359907-6 (Version None)
Quarter: 2004Q2

REPORT INFORMATION
  Report Type: 
  Country: None (occurrence: None)
  Receive Date: 20040518
  Receipt Date: 20030915
  Transmission Date: 20050107
  Serious: Yes (Other)
  Sender: FDA-Public Use
  Company Number: PHHO2003VE11717

PATIENT
  Age: 35 Year
  Sex: Female

DRUGS (2)
  1. ZELMAC / HTF 919A [Suspect]
     Indication: IRRITABLE BOWEL SYNDROME
     Dosage: 6 MG, QD
     Route: 048
     Dates: start: 20020405, end: 20020526
  2. PARIET [Concomitant]
     Dosage: 20 MG, QD
     Route: 048

REACTIONS (7)
  - ABORTION SPONTANEOUS [None]
  - BRADYCARDIA FOETAL [None]
  - DRUG EXPOSURE DURING PREGNANCY [None]
  - ENDOCERVICAL CURETTAGE [None]
  - FOETAL GROWTH RETARDATION [None]
  - HELICOBACTER GASTRITIS [None]
  - URINARY TRACT INFECTION [None]
